FAERS Safety Report 11575515 (Version 1)
Quarter: 2015Q3

REPORT INFORMATION
  Report Type: Spontaneous
  Country: US (occurrence: None)
  Receive Date: 20150929
  Receipt Date: 20150929
  Transmission Date: 20151125
  Serious: Yes (Hospitalization)
  Sender: FDA-Public Use
  Company Number: None

PATIENT
  Age: 4 Year
  Sex: Female
  Weight: 18.3 kg

DRUGS (6)
  1. PREDNISONE. [Suspect]
     Active Substance: PREDNISONE
     Dates: end: 20150904
  2. VINCRISTINE SULFATE. [Suspect]
     Active Substance: VINCRISTINE SULFATE
     Dates: end: 20150831
  3. CYTARABINE. [Suspect]
     Active Substance: CYTARABINE
     Dates: end: 20150831
  4. MERCAPTOPURINE. [Suspect]
     Active Substance: MERCAPTOPURINE
     Dates: end: 20150906
  5. METHOTREXATE [Suspect]
     Active Substance: METHOTREXATE
     Dates: end: 20150831
  6. HYDROCORTISONE. [Suspect]
     Active Substance: HYDROCORTISONE
     Dates: end: 20150831

REACTIONS (3)
  - Enterococcus test positive [None]
  - Pyrexia [None]
  - Neutropenia [None]

NARRATIVE: CASE EVENT DATE: 20150916
